FAERS Safety Report 24189403 (Version 1)
Quarter: 2024Q3

REPORT INFORMATION
  Report Type: Spontaneous
  Country: FR (occurrence: FR)
  Receive Date: 20240808
  Receipt Date: 20240808
  Transmission Date: 20241017
  Serious: Yes (Hospitalization)
  Sender: MYLAN
  Company Number: None

PATIENT
  Age: 69 Year
  Sex: Male

DRUGS (2)
  1. NALOXONE [Suspect]
     Active Substance: NALOXONE
     Indication: Toxicity to various agents
     Dosage: 0.6 MILLIGRAM, 1 TOTAL
     Route: 042
     Dates: start: 20240615
  2. NALOXONE [Suspect]
     Active Substance: NALOXONE
     Dosage: 0.2 MILLIGRAM, QH
     Route: 042
     Dates: start: 20240616, end: 20240618

REACTIONS (1)
  - Restlessness [Recovered/Resolved]

NARRATIVE: CASE EVENT DATE: 20240616
